FAERS Safety Report 7228295-X (Version None)
Quarter: 2011Q1

REPORT INFORMATION
  Report Type: 
  Country: None (occurrence: None)
  Receive Date: 20110114
  Receipt Date: 20110112
  Transmission Date: 20110831
  Serious: Yes (Hospitalization)
  Sender: FDA-Public Use
  Company Number: US-CEPHALON-2010002810

PATIENT
  Sex: Male
  Weight: 114 kg

DRUGS (1)
  1. TREANDA [Suspect]
     Indication: LYMPHOMA
     Route: 042
     Dates: start: 20100504, end: 20100505

REACTIONS (4)
  - PYREXIA [None]
  - PNEUMONIA [None]
  - DERMATITIS ACNEIFORM [None]
  - WHITE BLOOD CELL COUNT DECREASED [None]
